FAERS Safety Report 13725196 (Version 1)
Quarter: 2017Q3

REPORT INFORMATION
  Report Type: Spontaneous
  Country: RU (occurrence: RU)
  Receive Date: 20170706
  Receipt Date: 20170706
  Transmission Date: 20171127
  Serious: No
  Sender: FDA-Public Use
  Company Number: RU-B. BRAUN MEDICAL INC.-2023026

PATIENT
  Age: 73 Year

DRUGS (5)
  1. PARACETAMOL [Suspect]
     Active Substance: ACETAMINOPHEN
  2. MELDONIUM [Concomitant]
     Active Substance: MELDONIUM
     Route: 042
     Dates: start: 20170410, end: 20170410
  3. SODIUM CHLORIDE. [Suspect]
     Active Substance: SODIUM CHLORIDE
     Indication: HYPERTENSION
     Route: 042
     Dates: start: 20170410, end: 20170410
  4. ACTOVEGIN [Concomitant]
     Active Substance: BLOOD, BOVINE
     Route: 042
     Dates: start: 20170410, end: 20170410
  5. SUPRASTIN [Suspect]
     Active Substance: CHLOROPYRAMINE HYDROCHLORIDE

REACTIONS (3)
  - Chills [None]
  - Body temperature increased [None]
  - Back pain [None]
